FAERS Safety Report 8030258-1 (Version None)
Quarter: 2012Q1

REPORT INFORMATION
  Report Type: 
  Country: None (occurrence: None)
  Receive Date: 20120109
  Receipt Date: 20111228
  Transmission Date: 20120608
  Serious: No
  Sender: FDA-Public Use
  Company Number: PHHY2011JP099618

PATIENT
  Sex: Male

DRUGS (1)
  1. FAMVIR [Suspect]
     Indication: HERPES ZOSTER
     Dosage: 2 DF, QD
     Route: 048
     Dates: start: 20111101, end: 20111101

REACTIONS (5)
  - DIZZINESS [None]
  - LOSS OF CONSCIOUSNESS [None]
  - PALLOR [None]
  - BRADYCARDIA [None]
  - BLOOD PRESSURE DECREASED [None]
